FAERS Safety Report 7830194-7 (Version None)
Quarter: 2011Q4

REPORT INFORMATION
  Report Type: 
  Country: None (occurrence: None)
  Receive Date: 20111021
  Receipt Date: 20111007
  Transmission Date: 20120403
  Serious: Yes (Other)
  Sender: FDA-Public Use
  Company Number: PHHY2011FR89471

PATIENT
  Sex: Female
  Weight: 60 kg

DRUGS (2)
  1. TASIGNA [Suspect]
     Indication: CHRONIC MYELOID LEUKAEMIA
     Dosage: 800 MG, PER DAY
     Route: 048
     Dates: start: 20080518
  2. TASIGNA [Suspect]
     Dosage: 200 MG, PER DAY
     Route: 048
     Dates: start: 20090601, end: 20091201

REACTIONS (3)
  - CORONARY ARTERY DISEASE [None]
  - PERIPHERAL ARTERIAL OCCLUSIVE DISEASE [None]
  - CHEST PAIN [None]
